FAERS Safety Report 6532246-0 (Version None)
Quarter: 2010Q1

REPORT INFORMATION
  Report Type: 
  Country: None (occurrence: None)
  Receive Date: 20100108
  Receipt Date: 20100106
  Transmission Date: 20100710
  Serious: Yes (Life-Threatening, Hospitalization)
  Sender: FDA-Public Use
  Company Number: PHHY2009CA48576

PATIENT
  Sex: Female

DRUGS (5)
  1. DIOVAN [Suspect]
     Indication: HYPERTENSION
     Dosage: 80 MG, QD
     Route: 048
     Dates: start: 20090922, end: 20100105
  2. AVAPRO [Concomitant]
     Dosage: 150 UG, UNK
  3. METFORMIN [Concomitant]
     Dosage: 500 MG, TID
     Route: 048
     Dates: start: 20080814
  4. CRESTOR [Concomitant]
     Dosage: 10 MG,
     Dates: start: 20081031
  5. ASPIRIN [Concomitant]
     Dosage: 81 MG, QD
     Dates: start: 20080828

REACTIONS (4)
  - ENDOMETRIAL CANCER [None]
  - HYSTERECTOMY [None]
  - LAPAROTOMY [None]
  - SALPINGO-OOPHORECTOMY BILATERAL [None]
